FAERS Safety Report 9254144 (Version 1)
Quarter: 2013Q2

REPORT INFORMATION
  Report Type: Spontaneous
  Country: US (occurrence: None)
  Receive Date: 20130422
  Receipt Date: 20130422
  Transmission Date: 20140414
  Serious: Yes (Hospitalization)
  Sender: FDA-Public Use
  Company Number: None

PATIENT
  Age: 11 Year
  Sex: Female
  Weight: 49.6 kg

DRUGS (4)
  1. MERCAPTOPURINE [Suspect]
     Dates: end: 20130407
  2. METHOTREXATE [Suspect]
     Dates: end: 20130408
  3. PREDNISONE [Suspect]
     Dates: end: 20130316
  4. VINCRISTINE SULFATE [Suspect]
     Dates: end: 20130311

REACTIONS (3)
  - Decreased appetite [None]
  - Hypophagia [None]
  - Blood bilirubin increased [None]
